FAERS Safety Report 19805157 (Version 1)
Quarter: 2021Q3

REPORT INFORMATION
  Report Type: Spontaneous
  Country: US (occurrence: US)
  Receive Date: 20210908
  Receipt Date: 20210908
  Transmission Date: 20211014
  Serious: Yes (Hospitalization)
  Sender: FDA-Public Use
  Company Number: US-JNJFOC-20210904047

PATIENT
  Age: 28 Year
  Sex: Male
  Weight: 72.64 kg

DRUGS (5)
  1. RISPERDAL CONSTA [Suspect]
     Active Substance: RISPERIDONE
  2. RISPERDAL CONSTA [Suspect]
     Active Substance: RISPERIDONE
  3. RISPERDAL CONSTA [Suspect]
     Active Substance: RISPERIDONE
     Indication: MENTAL DISORDER
     Route: 030
     Dates: start: 20210810
  4. RISPERDAL CONSTA [Suspect]
     Active Substance: RISPERIDONE
  5. ALBUTEROL [SALBUTAMOL] [Concomitant]
     Active Substance: ALBUTEROL
     Indication: ASTHMA
     Route: 065

REACTIONS (8)
  - Hospitalisation [Unknown]
  - Restlessness [Unknown]
  - Asthenia [Unknown]
  - Insomnia [Unknown]
  - Coronavirus test positive [Unknown]
  - Agitation [Unknown]
  - Emotional distress [Unknown]
  - Tremor [Unknown]

NARRATIVE: CASE EVENT DATE: 202108
